FAERS Safety Report 6342369-7 (Version None)
Quarter: 2009Q3

REPORT INFORMATION
  Report Type: 
  Country: None (occurrence: None)
  Receive Date: 20090908
  Receipt Date: 20070606
  Transmission Date: 20100115
  Serious: Yes (Hospitalization, Other)
  Sender: FDA-Public Use
  Company Number: US-ASTRAZENECA-2006UW21995

PATIENT
  Age: 10387 Day
  Sex: Female
  Weight: 84.8 kg

DRUGS (11)
  1. SEROQUEL [Suspect]
     Indication: BIPOLAR DISORDER
     Dosage: 25 MG-400 MG
     Route: 048
     Dates: start: 20050621, end: 20060419
  2. SEROQUEL [Suspect]
     Dosage: 100 MG - 200 MG
     Route: 048
     Dates: start: 20060322
  3. ABILIFY [Concomitant]
  4. LOMICTAL [Concomitant]
  5. ZOLOFT [Concomitant]
  6. DEPAKOTE [Concomitant]
  7. GABITRIL [Concomitant]
     Dosage: 4MG-6MG
     Dates: start: 20051107
  8. KLONOPIN [Concomitant]
     Dosage: 0.25MG-0.5MG
     Dates: start: 20050708
  9. PREDNISONE [Concomitant]
     Dates: start: 20041101
  10. SINGULAIR [Concomitant]
     Dates: start: 20050609
  11. TRILEPTAL [Concomitant]
     Dates: start: 20050602

REACTIONS (5)
  - DIABETES MELLITUS [None]
  - DIABETES MELLITUS INADEQUATE CONTROL [None]
  - DIABETIC COMPLICATION [None]
  - DIABETIC KETOACIDOSIS [None]
  - TYPE 1 DIABETES MELLITUS [None]
